FAERS Safety Report 6000476-2 (Version None)
Quarter: 2008Q4

REPORT INFORMATION
  Report Type: 
  Country: None (occurrence: None)
  Receive Date: 20081211
  Receipt Date: 20081125
  Transmission Date: 20090506
  Serious: Yes (Hospitalization)
  Sender: FDA-Public Use
  Company Number: INT_00006_2008

PATIENT
  Age: 66 Year
  Sex: Female

DRUGS (1)
  1. CEFAZOLIN [Suspect]
     Indication: DRUG USE FOR UNKNOWN INDICATION
     Dosage: (500 MG 1X INTRATHECAL)
     Route: 037

REACTIONS (4)
  - APHONIA [None]
  - DYSARTHRIA [None]
  - DYSPHAGIA [None]
  - STATUS EPILEPTICUS [None]
